FAERS Safety Report 25587760 (Version 4)
Quarter: 2025Q4

REPORT INFORMATION
  Report Type: Spontaneous
  Country: CA (occurrence: CA)
  Receive Date: 20250721
  Receipt Date: 20251007
  Transmission Date: 20260117
  Serious: Yes (Hospitalization, Other)
  Sender: PFIZER
  Company Number: CA-PFIZER INC-202500145750

PATIENT
  Age: 78 Year
  Sex: Female
  Weight: 55 kg

DRUGS (3)
  1. IXIFI [Suspect]
     Active Substance: INFLIXIMAB-QBTX
     Indication: Colitis ulcerative
     Dosage: 700 MG, 0, 2, 6, THEN EVERY 8 WEEKS
     Route: 042
     Dates: start: 20250620
  2. IXIFI [Suspect]
     Active Substance: INFLIXIMAB-QBTX
     Dosage: 700 MG, 0, 2, 6, THEN EVERY 8 WEEKS (RECEIVED AFTER 3 WEEKS AND 5 DAYS)
     Route: 042
     Dates: start: 20250716
  3. PREDNISONE [Concomitant]
     Active Substance: PREDNISONE
     Dosage: UNK

REACTIONS (11)
  - Eating disorder [Recovered/Resolved]
  - Dysphagia [Recovered/Resolved]
  - Lethargy [Recovered/Resolved]
  - Anxiety [Recovered/Resolved]
  - Asthenia [Recovered/Resolved]
  - Paraesthesia oral [Recovered/Resolved]
  - Hypoaesthesia oral [Recovered/Resolved]
  - Abdominal discomfort [Recovered/Resolved]
  - Blood potassium decreased [Recovered/Resolved]
  - Therapeutic response shortened [Unknown]
  - Off label use [Unknown]

NARRATIVE: CASE EVENT DATE: 20250101
